FAERS Safety Report 8443457-1 (Version None)
Quarter: 2012Q2

REPORT INFORMATION
  Report Type: 
  Country: None (occurrence: None)
  Receive Date: 20120618
  Receipt Date: 20120605
  Transmission Date: 20120825
  Serious: No
  Sender: FDA-Public Use
  Company Number: US-JNJFOC-20120603208

PATIENT
  Sex: Female
  Weight: 45.36 kg

DRUGS (1)
  1. DURAGESIC-100 [Suspect]
     Indication: PAIN
     Route: 062
     Dates: start: 20120501

REACTIONS (1)
  - WRONG TECHNIQUE IN DRUG USAGE PROCESS [None]
